FAERS Safety Report 17450136 (Version 1)
Quarter: 2020Q1

REPORT INFORMATION
  Report Type: Spontaneous
  Country: US (occurrence: US)
  Receive Date: 20200224
  Receipt Date: 20200224
  Transmission Date: 20200409
  Serious: No
  Sender: FDA-Public Use
  Company Number: US-BTCP PHARMA-INS201901-000319

PATIENT
  Age: 59 Year
  Sex: Female

DRUGS (10)
  1. FENTANYL TRANSDERMAL SYSTEM [Concomitant]
     Active Substance: FENTANYL
  2. COMBIVENT [Concomitant]
     Active Substance: ALBUTEROL SULFATE\IPRATROPIUM BROMIDE
  3. ABSTRAL [Concomitant]
     Active Substance: FENTANYL CITRATE
  4. SUBSYS [Suspect]
     Active Substance: FENTANYL
     Indication: BREAKTHROUGH PAIN
     Route: 060
     Dates: start: 20190126, end: 20190218
  5. GENERIC VALIUM [Concomitant]
     Active Substance: DIAZEPAM
  6. ASTELIN [Concomitant]
     Active Substance: AZELASTINE HYDROCHLORIDE
     Indication: SINUS DISORDER
  7. GENERIC REMERON [Concomitant]
     Active Substance: MIRTAZAPINE
  8. NASONEX [Concomitant]
     Active Substance: MOMETASONE FUROATE
     Indication: SINUS DISORDER
  9. OMEPRAZOLE. [Concomitant]
     Active Substance: OMEPRAZOLE
     Indication: GASTROOESOPHAGEAL REFLUX DISEASE
  10. LYRICA [Concomitant]
     Active Substance: PREGABALIN

REACTIONS (7)
  - Decreased appetite [Not Recovered/Not Resolved]
  - Fatigue [Not Recovered/Not Resolved]
  - Product quality issue [Unknown]
  - Headache [Not Recovered/Not Resolved]
  - Application site pain [Recovered/Resolved]
  - Abdominal pain upper [Unknown]
  - Somnolence [Unknown]

NARRATIVE: CASE EVENT DATE: 201901
